FAERS Safety Report 4972266-0 (Version None)
Quarter: 2006Q2

REPORT INFORMATION
  Report Type: 
  Country: None (occurrence: None)
  Receive Date: 20060407
  Receipt Date: 20060331
  Transmission Date: 20061013
  Serious: Yes (Other)
  Sender: FDA-Public Use
  Company Number: CHPA2006US03394

PATIENT
  Age: 32 Year
  Sex: Female

DRUGS (1)
  1. EXCEDRIN TENSIONHEADACHE (NCH) (ACETAMINOPHEN (PARACETAMOL), CAFFEINE) [Suspect]
     Indication: HEADACHE
     Dosage: 2 DF, PRN, ORAL
     Route: 048

REACTIONS (3)
  - DRUG ABUSER [None]
  - DRUG INEFFECTIVE [None]
  - OVERDOSE [None]
